FAERS Safety Report 15023754 (Version 1)
Quarter: 2018Q2

REPORT INFORMATION
  Report Type: Spontaneous
  Country: US (occurrence: US)
  Receive Date: 20180618
  Receipt Date: 20180618
  Transmission Date: 20180711
  Serious: No
  Sender: FDA-Public Use
  Company Number: US-TEVA-2018-US-908356

PATIENT
  Sex: Male

DRUGS (1)
  1. RASAGILINE. [Suspect]
     Active Substance: RASAGILINE
     Route: 065

REACTIONS (2)
  - Product counterfeit [Unknown]
  - Drug diversion [Unknown]
